FAERS Safety Report 11538782 (Version 1)
Quarter: 2015Q3

REPORT INFORMATION
  Report Type: Spontaneous
  Country: CA (occurrence: CA)
  Receive Date: 20150923
  Receipt Date: 20150923
  Transmission Date: 20151125
  Serious: Yes (Other)
  Sender: FDA-Public Use
  Company Number: CA-ROCHE-1637103

PATIENT
  Sex: Female

DRUGS (4)
  1. ALVESCO [Concomitant]
     Active Substance: CICLESONIDE
  2. XOLAIR [Suspect]
     Active Substance: OMALIZUMAB
     Indication: ASTHMA
     Route: 058
     Dates: start: 20150815
  3. VENTOLIN [Concomitant]
     Active Substance: ALBUTEROL SULFATE
  4. OXEZE [Concomitant]

REACTIONS (7)
  - Pulmonary function test decreased [Unknown]
  - Sinusitis [Unknown]
  - Adrenal insufficiency [Unknown]
  - Nasal polyps [Unknown]
  - Blood pressure increased [Unknown]
  - Asthma [Unknown]
  - Pleural fibrosis [Unknown]
